FAERS Safety Report 15832883 (Version 1)
Quarter: 2019Q1

REPORT INFORMATION
  Report Type: Spontaneous
  Country: US (occurrence: US)
  Receive Date: 20190116
  Receipt Date: 20190116
  Transmission Date: 20190417
  Serious: No
  Sender: FDA-Public Use
  Company Number: US-SHIRE-US201901503

PATIENT
  Age: 92 Year
  Sex: Female
  Weight: 77.98 kg

DRUGS (3)
  1. METFORMIN [Concomitant]
     Active Substance: METFORMIN HYDROCHLORIDE
     Indication: PRODUCT USED FOR UNKNOWN INDICATION
  2. XIIDRA [Suspect]
     Active Substance: LIFITEGRAST
     Indication: DRY EYE
     Dosage: 1 GTT, 2X/DAY:BID
     Route: 047
     Dates: start: 20190111
  3. HYDROCHLOROTHIAZIDE. [Concomitant]
     Active Substance: HYDROCHLOROTHIAZIDE
     Indication: PRODUCT USED FOR UNKNOWN INDICATION

REACTIONS (4)
  - Instillation site irritation [Not Recovered/Not Resolved]
  - Instillation site erythema [Not Recovered/Not Resolved]
  - Instillation site pain [Not Recovered/Not Resolved]
  - Instillation site inflammation [Not Recovered/Not Resolved]

NARRATIVE: CASE EVENT DATE: 20190111
